FAERS Safety Report 9251842 (Version 1)
Quarter: 2013Q2

REPORT INFORMATION
  Report Type: Spontaneous
  Country: US (occurrence: US)
  Receive Date: 20130424
  Receipt Date: 20130424
  Transmission Date: 20140414
  Serious: No
  Sender: FDA-Public Use
  Company Number: US-PFIZER INC-2013128009

PATIENT
  Age: 77 Year
  Sex: Female
  Weight: 43.99 kg

DRUGS (6)
  1. NICOTROL INHALER [Suspect]
     Indication: SMOKING CESSATION THERAPY
     Dosage: UNK
     Dates: start: 2012
  2. XANAX [Concomitant]
     Dosage: UNK
  3. SYNTHROID [Concomitant]
     Indication: THYROID DISORDER
     Dosage: 88 UG, UNK
  4. PERCOCET [Concomitant]
     Dosage: UNK
  5. CRESTOR [Concomitant]
     Dosage: 20 MG, UNK
  6. OXYCODONE [Concomitant]
     Dosage: UNK

REACTIONS (1)
  - Weight increased [Unknown]
